FAERS Safety Report 18779757 (Version 4)
Quarter: 2021Q1

REPORT INFORMATION
  Report Type: Report from Study
  Country: CA (occurrence: CA)
  Receive Date: 20210125
  Receipt Date: 20210326
  Transmission Date: 20210419
  Serious: Yes (Hospitalization, Other)
  Sender: FDA-Public Use
  Company Number: CA-BRISTOL-MYERS SQUIBB COMPANY-BMS-2021-001492

PATIENT
  Age: 83 Year
  Sex: Female

DRUGS (1)
  1. ABATACEPT [Suspect]
     Active Substance: ABATACEPT
     Indication: RHEUMATOID ARTHRITIS
     Dosage: 500 MILLIGRAM, Q4WK
     Route: 042
     Dates: start: 20140805, end: 20201211

REACTIONS (4)
  - Peripheral vein occlusion [Unknown]
  - Pneumonia pseudomonal [Unknown]
  - General physical health deterioration [Unknown]
  - Pneumonia [Unknown]

NARRATIVE: CASE EVENT DATE: 20210103
